FAERS Safety Report 4921374-9 (Version None)
Quarter: 2006Q1

REPORT INFORMATION
  Report Type: 
  Country: None (occurrence: None)
  Receive Date: 20060222
  Receipt Date: 20060222
  Transmission Date: 20060701
  Serious: Yes (Hospitalization)
  Sender: FDA-Public Use
  Company Number: None

PATIENT
  Age: 74 Year
  Sex: Female
  Weight: 58.9676 kg

DRUGS (12)
  1. PHENYTOIN [Suspect]
     Indication: ROAD TRAFFIC ACCIDENT
     Dosage: 300 MG AT BEDTIME
     Dates: start: 20051101
  2. PHENYTOIN [Suspect]
     Indication: SUBARACHNOID HAEMORRHAGE
     Dosage: 300 MG AT BEDTIME
     Dates: start: 20051101
  3. LIPITOR [Concomitant]
  4. DOCUSATE [Concomitant]
  5. PROTONIX [Concomitant]
  6. ACYCLOVIR SODIUM [Concomitant]
  7. CEFTRIAXONE [Concomitant]
  8. LEVAQUIN [Concomitant]
  9. IRON [Concomitant]
  10. DILANTIN [Concomitant]
  11. MEGACE [Concomitant]
  12. OXYCODONE [Concomitant]

REACTIONS (11)
  - ABDOMINAL PAIN UPPER [None]
  - CONFUSIONAL STATE [None]
  - DRUG ERUPTION [None]
  - DRUG HYPERSENSITIVITY [None]
  - DRUG TOXICITY [None]
  - LIVER FUNCTION TEST ABNORMAL [None]
  - PLATELET COUNT DECREASED [None]
  - PYREXIA [None]
  - RASH MACULO-PAPULAR [None]
  - SHOULDER PAIN [None]
  - THROMBOCYTOPENIA [None]
